FAERS Safety Report 5444215-2 (Version None)
Quarter: 2007Q3

REPORT INFORMATION
  Report Type: 
  Country: None (occurrence: None)
  Receive Date: 20070906
  Receipt Date: 20070829
  Transmission Date: 20080115
  Serious: Yes (Hospitalization, Other)
  Sender: FDA-Public Use
  Company Number: US-JNJFOC-20070806363

PATIENT
  Sex: Male
  Weight: 80.74 kg

DRUGS (6)
  1. DURAGESIC-100 [Suspect]
     Indication: PAIN
     Route: 062
  2. FENTANYL TRANSDERMAL SYSTEM [Suspect]
     Indication: PAIN
     Route: 062
  3. NEURONTIN [Concomitant]
     Route: 048
  4. CIPRO [Concomitant]
     Indication: INFECTION
     Route: 048
  5. BACLOFEN [Concomitant]
     Indication: MUSCLE RELAXANT THERAPY
     Route: 048
  6. KLONOPIN [Concomitant]
     Route: 048

REACTIONS (3)
  - CYST [None]
  - OSTEOMYELITIS [None]
  - PAIN [None]
